FAERS Safety Report 8314200-1 (Version None)
Quarter: 2012Q2

REPORT INFORMATION
  Report Type: 
  Country: None (occurrence: None)
  Receive Date: 20120426
  Receipt Date: 20120423
  Transmission Date: 20120825
  Serious: Yes (Death, Other)
  Sender: FDA-Public Use
  Company Number: PHHY2012GR034651

PATIENT
  Age: 72 Year
  Sex: Female

DRUGS (1)
  1. ILARIS [Suspect]
     Indication: CRYOPYRIN ASSOCIATED PERIODIC SYNDROME
     Dosage: UNK
     Dates: start: 20111201

REACTIONS (4)
  - HEPATOMEGALY [None]
  - LYMPHOMA [None]
  - LYMPHADENOPATHY [None]
  - SPLENOMEGALY [None]
